FAERS Safety Report 9303041 (Version 1)
Quarter: 2013Q2

REPORT INFORMATION
  Report Type: Spontaneous
  Country: FR (occurrence: FR)
  Receive Date: 20130522
  Receipt Date: 20130522
  Transmission Date: 20140414
  Serious: Yes (Other)
  Sender: FDA-Public Use
  Company Number: FR-ROCHE-1226805

PATIENT
  Age: 78 Year
  Sex: Female

DRUGS (4)
  1. LUCENTIS [Suspect]
     Indication: AGE-RELATED MACULAR DEGENERATION
     Route: 050
     Dates: start: 201101
  2. LUCENTIS [Suspect]
     Route: 050
     Dates: start: 201206, end: 201206
  3. ZANEXTRA [Concomitant]
  4. PREVISCAN [Concomitant]

REACTIONS (3)
  - Cardiac failure [Recovered/Resolved]
  - Skin ulcer [Unknown]
  - Visual impairment [Unknown]
